FAERS Safety Report 6990490-2 (Version None)
Quarter: 2010Q3

REPORT INFORMATION
  Report Type: 
  Country: None (occurrence: None)
  Receive Date: 20100916
  Receipt Date: 20100629
  Transmission Date: 20110219
  Serious: Yes (Other)
  Sender: FDA-Public Use
  Company Number: US-PFIZER INC-2010069615

PATIENT
  Sex: Female

DRUGS (5)
  1. LYRICA [Suspect]
     Indication: PAIN
     Dosage: 50 MG, 3X/DAY
     Route: 048
  2. EFFEXOR [Suspect]
     Indication: BIPOLAR I DISORDER
     Dosage: 75 MG, 3X/DAY
     Route: 048
  3. OXYGEN [Concomitant]
     Indication: LUNG INFILTRATION
     Dosage: UNK
  4. PREDNISONE [Concomitant]
     Dosage: UNK
  5. ZOLOFT [Concomitant]
     Indication: BIPOLAR I DISORDER
     Dosage: 100 MG, 1X/DAY

REACTIONS (4)
  - LUNG NEOPLASM [None]
  - OSTEOARTHRITIS [None]
  - OSTEONECROSIS [None]
  - OSTEOPOROSIS [None]
